FAERS Safety Report 26043011 (Version 1)
Quarter: 2025Q4

REPORT INFORMATION
  Report Type: Spontaneous
  Country: US (occurrence: US)
  Receive Date: 20251113
  Receipt Date: 20251113
  Transmission Date: 20260118
  Serious: No
  Sender: ANI
  Company Number: US-ANIPHARMA-2025-US-047451

PATIENT
  Sex: Female

DRUGS (5)
  1. CORTICOTROPIN [Suspect]
     Active Substance: CORTICOTROPIN
     Indication: Iridocyclitis
     Dosage: TWO TIMES PER WEEK
     Route: 058
  2. LEFLUNOMIDE [Concomitant]
     Active Substance: LEFLUNOMIDE
  3. ATROPINE SULFATE [Concomitant]
     Active Substance: ATROPINE SULFATE
  4. PROLENSA [Concomitant]
     Active Substance: BROMFENAC SODIUM
  5. DUREZOL [Concomitant]
     Active Substance: DIFLUPREDNATE

REACTIONS (3)
  - Chest pain [Recovered/Resolved]
  - Fluid retention [Not Recovered/Not Resolved]
  - Swelling [Not Recovered/Not Resolved]
